FAERS Safety Report 14949654 (Version 1)
Quarter: 2018Q2

REPORT INFORMATION
  Report Type: Spontaneous
  Country: DE (occurrence: DE)
  Receive Date: 20180529
  Receipt Date: 20180529
  Transmission Date: 20180711
  Serious: Yes (Hospitalization)
  Sender: FDA-Public Use
  Company Number: DE-ASTRAZENECA-2018SE68004

PATIENT
  Sex: Male
  Weight: 107 kg

DRUGS (2)
  1. SEROQUEL [Suspect]
     Active Substance: QUETIAPINE FUMARATE
     Dosage: 0-0-300MG-600MG
     Route: 048
  2. MELPERONE [Concomitant]
     Active Substance: MELPERONE

REACTIONS (1)
  - Erectile dysfunction [Recovered/Resolved]
